FAERS Safety Report 8030853-X (Version None)
Quarter: 2012Q1

REPORT INFORMATION
  Report Type: 
  Country: None (occurrence: None)
  Receive Date: 20120105
  Receipt Date: 20111229
  Transmission Date: 20120608
  Serious: Yes (Hospitalization, Other)
  Sender: FDA-Public Use
  Company Number: CL-368-2011

PATIENT
  Age: 44 Year
  Sex: Female
  Weight: 46 kg

DRUGS (3)
  1. CLONAZEPAM [Concomitant]
  2. FLUMAZENIL [Suspect]
     Indication: DETOXIFICATION
     Dosage: 0.5 MG/DAY IV
     Route: 042
  3. VALPROIC ACID [Suspect]
     Indication: CONVULSION PROPHYLAXIS
     Dosage: 1000 MG OD ORAL
     Route: 048

REACTIONS (3)
  - GENERALISED NON-CONVULSIVE EPILEPSY [None]
  - ABNORMAL BEHAVIOUR [None]
  - AUTOMATISM [None]
